FAERS Safety Report 4582488-9 (Version None)
Quarter: 2005Q1

REPORT INFORMATION
  Report Type: 
  Country: None (occurrence: None)
  Receive Date: 20050215
  Receipt Date: 20050125
  Transmission Date: 20050727
  Serious: Yes (Death, Hospitalization)
  Sender: FDA-Public Use
  Company Number: JP-NOVOPROD-241903

PATIENT
  Age: 72 Year
  Sex: Female

DRUGS (3)
  1. NOVORAPID CHU [Suspect]
     Indication: DIABETES MELLITUS
     Dosage: 48 IU, UNK
     Dates: start: 20030722, end: 20040731
  2. NOVOLIN N [Concomitant]
     Indication: DIABETES MELLITUS
     Dosage: 16 IU, UNK
     Route: 058
  3. WARFARIN SODIUM [Concomitant]
     Indication: AORTIC VALVE STENOSIS

REACTIONS (1)
  - MEGACOLON [None]
